FAERS Safety Report 8071158-0 (Version None)
Quarter: 2012Q1

REPORT INFORMATION
  Report Type: 
  Country: None (occurrence: None)
  Receive Date: 20120125
  Receipt Date: 20120115
  Transmission Date: 20120608
  Serious: Yes (Other)
  Sender: FDA-Public Use
  Company Number: PHHY2012US003738

PATIENT
  Age: 10 Year
  Sex: Female

DRUGS (1)
  1. IMATINIB MESYLATE [Suspect]
     Indication: GRAFT VERSUS HOST DISEASE
     Dosage: 400 MG, DAILY

REACTIONS (1)
  - DISEASE PROGRESSION [None]
